FAERS Safety Report 26071566 (Version 1)
Quarter: 2025Q4

REPORT INFORMATION
  Report Type: Report from Study
  Country: ZA (occurrence: ZA)
  Receive Date: 20251120
  Receipt Date: 20251120
  Transmission Date: 20260118
  Serious: Yes (Other)
  Sender: ROCHE
  Company Number: ZA-ROCHE-10000247346

PATIENT
  Sex: Female

DRUGS (2)
  1. VABYSMO [Suspect]
     Active Substance: FARICIMAB-SVOA
     Indication: Macular degeneration
     Dosage: 2ND INJECTION: 21-FEB-2025?3RD INJECTION: 28-MAR-2025?4TH INJECTION: 16-MAY-2025
     Route: 050
     Dates: start: 20250117
  2. VABYSMO [Suspect]
     Active Substance: FARICIMAB-SVOA
     Dosage: 2ND INJECTION: 21-FEB-2025?3RD INJECTION: 28-MAR-2025?4TH INJECTION: 16-MAY-2025
     Route: 050
     Dates: start: 20250117

REACTIONS (3)
  - Optical coherence tomography abnormal [Unknown]
  - Off label use [Unknown]
  - Retinal thickening [Unknown]
